FAERS Safety Report 8131751-3 (Version None)
Quarter: 2012Q1

REPORT INFORMATION
  Report Type: 
  Country: None (occurrence: None)
  Receive Date: 20120208
  Receipt Date: 20120206
  Transmission Date: 20120608
  Serious: Yes (Death)
  Sender: FDA-Public Use
  Company Number: 1022556-2012-00009

PATIENT
  Age: 33 Year
  Sex: Female

DRUGS (1)
  1. DEXATRIM-GENERIC [Suspect]
     Indication: WEIGHT LOSS DIET
     Dosage: ORAL
     Route: 048

REACTIONS (4)
  - HAEMORRHAGIC STROKE [None]
  - MATERNAL EXPOSURE BEFORE PREGNANCY [None]
  - HEADACHE [None]
  - BLOOD PRESSURE INCREASED [None]
